FAERS Safety Report 18628518 (Version 1)
Quarter: 2020Q4

REPORT INFORMATION
  Report Type: Report from Study
  Country: US (occurrence: US)
  Receive Date: 20201217
  Receipt Date: 20201217
  Transmission Date: 20210114
  Serious: Yes (Other)
  Sender: FDA-Public Use
  Company Number: US-BIOVITRUM-2020US7494

PATIENT
  Age: 7 Year

DRUGS (1)
  1. KINERET [Suspect]
     Active Substance: ANAKINRA
     Indication: CRYOPYRIN ASSOCIATED PERIODIC SYNDROME
     Route: 058
     Dates: start: 20190522

REACTIONS (7)
  - Petechiae [Unknown]
  - Sinus disorder [Unknown]
  - Hypersensitivity [Unknown]
  - Off label use [Unknown]
  - Vomiting [Unknown]
  - Haematemesis [Unknown]
  - Gastroenteritis viral [Unknown]

NARRATIVE: CASE EVENT DATE: 20190522
